FAERS Safety Report 7811530-4 (Version None)
Quarter: 2011Q4

REPORT INFORMATION
  Report Type: 
  Country: None (occurrence: None)
  Receive Date: 20111011
  Receipt Date: 20111004
  Transmission Date: 20120403
  Serious: Yes (Hospitalization)
  Sender: FDA-Public Use
  Company Number: A0945144A

PATIENT
  Age: 35 Year
  Sex: Female

DRUGS (2)
  1. ASPIRIN + CAFFEINE +  POWDER (ASPIRIN+CAFFEINE) [Suspect]
     Indication: ORAL PAIN
     Dosage: / SINGLE DOSE / ORAL
     Route: 048
     Dates: start: 20110919, end: 20110919
  2. ASPIRIN + CAFFEINE + SALICYLAMIDE POWDER (ASPIRIN+CAFFEINE+SALICYLA) [Suspect]
     Dosage: SINGLE DOSE / SINGLE DOSE / ORAL
     Route: 048
     Dates: start: 20110919, end: 20110919

REACTIONS (35)
  - FEAR [None]
  - FUNGAL INFECTION [None]
  - CONDITION AGGRAVATED [None]
  - QUALITY OF LIFE DECREASED [None]
  - LOSS OF CONSCIOUSNESS [None]
  - BLOOD ALBUMIN DECREASED [None]
  - BLOOD PRESSURE INCREASED [None]
  - BONE DISORDER [None]
  - MOUTH INJURY [None]
  - HYPERHIDROSIS [None]
  - WHITE BLOOD CELL COUNT DECREASED [None]
  - SWELLING [None]
  - HERPES VIRUS INFECTION [None]
  - SYSTEMIC LUPUS ERYTHEMATOSUS [None]
  - APHAGIA [None]
  - FLUID RETENTION [None]
  - GASTROOESOPHAGEAL REFLUX DISEASE [None]
  - WEIGHT INCREASED [None]
  - PYREXIA [None]
  - CARDIAC DISORDER [None]
  - GINGIVAL ERYTHEMA [None]
  - PAIN [None]
  - ORAL PAIN [None]
  - MALNUTRITION [None]
  - FEELING ABNORMAL [None]
  - ANXIETY [None]
  - INSOMNIA [None]
  - DISCOMFORT [None]
  - PSYCHIATRIC SYMPTOM [None]
  - THERMAL BURN [None]
  - BURNS THIRD DEGREE [None]
  - DEPRESSION [None]
  - MAJOR DEPRESSION [None]
  - FRUSTRATION [None]
  - RED BLOOD CELL COUNT DECREASED [None]
